FAERS Safety Report 5950543-4 (Version None)
Quarter: 2008Q4

REPORT INFORMATION
  Report Type: 
  Country: None (occurrence: None)
  Receive Date: 20081022
  Receipt Date: 20080623
  Transmission Date: 20090506
  Serious: No
  Sender: FDA-Public Use
  Company Number: ALL1-2008-01721

PATIENT
  Age: 8 Year
  Sex: Male
  Weight: 22.9 kg

DRUGS (3)
  1. VYVANSE [Suspect]
     Indication: ATTENTION DEFICIT/HYPERACTIVITY DISORDER
     Dosage: 50 MG, 1X/DAY: QD, ORAL
     Route: 048
     Dates: start: 20080423, end: 20080605
  2. TENEX [Concomitant]
  3. MELATONIN (MELATONIN) TABLET [Concomitant]

REACTIONS (8)
  - ABDOMINAL PAIN UPPER [None]
  - CONDITION AGGRAVATED [None]
  - DRY THROAT [None]
  - DYSPNOEA [None]
  - HEADACHE [None]
  - IRRITABILITY [None]
  - OROPHARYNGEAL PAIN [None]
  - WEIGHT DECREASED [None]
